FAERS Safety Report 6003602-4 (Version None)
Quarter: 2008Q4

REPORT INFORMATION
  Report Type: 
  Country: None (occurrence: None)
  Receive Date: 20081216
  Receipt Date: 20081204
  Transmission Date: 20090506
  Serious: Yes (Hospitalization)
  Sender: FDA-Public Use
  Company Number: PL-PFIZER INC-2008046191

PATIENT

DRUGS (3)
  1. SUNITINIB MALATE [Suspect]
     Indication: BREAST CANCER
     Dosage: 37.5 MG, 1X/DAY
     Route: 048
     Dates: start: 20071206, end: 20080503
  2. SUNITINIB MALATE [Suspect]
     Dosage: 37.5 MG, 1X/DAY
     Route: 048
     Dates: start: 20080517
  3. *CAPECITABINE [Suspect]
     Indication: BREAST CANCER
     Dosage: 1600 MG, 2X/DAY DAY 1-14 EVERY 3 WEEKS
     Route: 048
     Dates: start: 20071206

REACTIONS (1)
  - GASTRITIS [None]
